FAERS Safety Report 15710604 (Version 1)
Quarter: 2018Q4

REPORT INFORMATION
  Report Type: Spontaneous
  Country: JP (occurrence: JP)
  Receive Date: 20181211
  Receipt Date: 20181211
  Transmission Date: 20190205
  Serious: Yes (Hospitalization, Other)
  Sender: FDA-Public Use
  Company Number: JP-MYLANLABS-2018M1090405

PATIENT
  Age: 29 Year
  Sex: Female

DRUGS (10)
  1. CEFEPIME [Suspect]
     Active Substance: CEFEPIME HYDROCHLORIDE
     Indication: STAPHYLOCOCCAL INFECTION
     Route: 065
  2. VANCOMYCIN [Suspect]
     Active Substance: VANCOMYCIN
     Indication: STAPHYLOCOCCAL INFECTION
     Route: 042
  3. DAPTOMYCIN. [Suspect]
     Active Substance: DAPTOMYCIN
     Route: 065
  4. CEFOTAXIME [Suspect]
     Active Substance: CEFOTAXIME SODIUM
     Indication: STAPHYLOCOCCAL INFECTION
     Route: 065
  5. METHYLPREDNISOLONE. [Suspect]
     Active Substance: METHYLPREDNISOLONE
     Indication: DIFFERENTIATION SYNDROME
     Route: 065
  6. TRETINOIN. [Suspect]
     Active Substance: TRETINOIN
     Route: 065
  7. METHYLPREDNISOLONE. [Suspect]
     Active Substance: METHYLPREDNISOLONE
     Dosage: 160 MILLIGRAM, QD
     Route: 065
  8. PREDNISOLONE. [Suspect]
     Active Substance: PREDNISOLONE
     Indication: DIFFERENTIATION SYNDROME
     Route: 065
  9. LINEZOLID. [Suspect]
     Active Substance: LINEZOLID
     Route: 042
  10. DAUNORUBICIN [Suspect]
     Active Substance: DAUNORUBICIN
     Indication: DIFFERENTIATION SYNDROME
     Route: 065

REACTIONS (7)
  - Pathogen resistance [Recovered/Resolved]
  - Differentiation syndrome [Unknown]
  - Bacteraemia [Recovered/Resolved]
  - Maternal exposure during pregnancy [Recovered/Resolved]
  - Staphylococcal infection [Recovered/Resolved]
  - Respiratory distress [Unknown]
  - Amniotic cavity infection [Recovered/Resolved]
